FAERS Safety Report 8935211 (Version 1)
Quarter: 2012Q4

REPORT INFORMATION
  Report Type: 
  Country: DE (occurrence: DE)
  Receive Date: 20121129
  Receipt Date: 20121129
  Transmission Date: 20130627
  Serious: Yes (Other)
  Sender: FDA-Public Use
  Company Number: GXKR2012DE003635

PATIENT
  Sex: Female

DRUGS (3)
  1. MIRTAZAPINE [Suspect]
     Dosage: Maternal dose: 15 mg, QD
     Route: 064
  2. SERTRALINE [Suspect]
     Dosage: Maternal dose: 50 mg/day
     Route: 064
  3. FOLIC ACID [Concomitant]
     Indication: PROPHYLAXIS OF NEURAL TUBE DEFECT
     Dosage: Maternal dose: 0.4 mg/day
     Route: 064

REACTIONS (4)
  - Infantile apnoeic attack [Recovered/Resolved]
  - Oxygen saturation decreased [Recovered/Resolved]
  - Myoclonus [Recovered/Resolved]
  - Foetal exposure during pregnancy [Unknown]
